FAERS Safety Report 12655297 (Version 1)
Quarter: 2016Q3

REPORT INFORMATION
  Report Type: Spontaneous
  Country: US (occurrence: US)
  Receive Date: 20160816
  Receipt Date: 20160816
  Transmission Date: 20161109
  Serious: No
  Sender: FDA-Public Use
  Company Number: US-PERRIGO-15US013392

PATIENT
  Age: 56 Year
  Sex: Male
  Weight: 124.72 kg

DRUGS (3)
  1. NICOTINE POLACRILEX [Suspect]
     Active Substance: NICOTINE
     Dosage: 4 MG, GREATER THAN 20 TIMES IN 24 HOURS, SINGLE
     Route: 002
     Dates: start: 2015, end: 2015
  2. NICOTINE POLACRILEX [Suspect]
     Active Substance: NICOTINE
     Indication: SMOKING CESSATION THERAPY
     Dosage: 4 MG, 20 TIMES QD
     Route: 002
     Dates: start: 20151223
  3. PRILOSEC [Concomitant]
     Active Substance: OMEPRAZOLE MAGNESIUM
     Indication: GASTRIC DISORDER
     Route: 048
     Dates: start: 201510

REACTIONS (10)
  - Anxiety [Recovered/Resolved]
  - Palpitations [Recovered/Resolved]
  - Tremor [Recovered/Resolved]
  - Overdose [Unknown]
  - Nicotine dependence [Unknown]
  - Drug ineffective [Unknown]
  - Hyperhidrosis [Recovered/Resolved]
  - Withdrawal syndrome [Unknown]
  - Nausea [Recovered/Resolved]
  - Blood glucose increased [Recovered/Resolved]

NARRATIVE: CASE EVENT DATE: 2015
